FAERS Safety Report 8509228 (Version 5)
Quarter: 2013Q1

REPORT INFORMATION
  Report Type: Report from Study
  Country: JP (occurrence: JP)
  Receive Date: 20120412
  Receipt Date: 20130107
  Transmission Date: 20140127
  Serious: Yes (Death, Other)
  Sender: FDA-Public Use
  Company Number: JP-ABBOTT-12P-087-0921794-00

PATIENT
  Age: 62 Year
  Sex: Female
  Weight: 44.5 kg

DRUGS (7)
  1. HUMIRA 40 MG/ 0.8 ML PRE-FILLED SYRINGE [Suspect]
     Indication: CROHN^S DISEASE
     Route: 058
     Dates: start: 20111208, end: 20111208
  2. HUMIRA 40 MG/ 0.8 ML PRE-FILLED SYRINGE [Suspect]
     Dates: start: 20111222, end: 20111222
  3. HUMIRA 40 MG/ 0.8 ML PRE-FILLED SYRINGE [Suspect]
     Dates: start: 20120115, end: 20120119
  4. FAMOTIDINE [Concomitant]
     Indication: CROHN^S DISEASE
     Dates: end: 20120309
  5. LOPERAMIDE HYDROCHLORIDE [Concomitant]
     Indication: CROHN^S DISEASE
     Route: 048
     Dates: end: 20120217
  6. LOPERAMIDE HYDROCHLORIDE [Concomitant]
     Dates: start: 20120218, end: 20120309
  7. POLYCARBOPHIL CALCIUM [Concomitant]
     Indication: CROHN^S DISEASE
     Route: 048
     Dates: start: 20120214, end: 20120309

REACTIONS (7)
  - Respiratory arrest [Unknown]
  - Device related sepsis [Fatal]
  - General physical health deterioration [Unknown]
  - Surgical procedure repeated [Unknown]
  - Device related sepsis [Unknown]
  - Herpes zoster [Unknown]
  - Sepsis [Fatal]
